FAERS Safety Report 9485939 (Version 1)
Quarter: 2013Q3

REPORT INFORMATION
  Report Type: Spontaneous
  Country: DE (occurrence: None)
  Receive Date: 20130812
  Receipt Date: 20130812
  Transmission Date: 20140515
  Serious: Yes (Hospitalization, Other)
  Sender: FDA-Public Use
  Company Number: GER/GER/13/0033885

PATIENT
  Sex: Female
  Weight: 2.83 kg

DRUGS (1)
  1. VENLAFAXINE (VENLAFAXINE) [Suspect]
     Indication: DEPRESSION
     Route: 064

REACTIONS (6)
  - Maternal drugs affecting foetus [None]
  - Respiratory acidosis [None]
  - Muscle spasticity [None]
  - Respiratory disorder [None]
  - Bradycardia neonatal [None]
  - Depression [None]
